FAERS Safety Report 8499419-1 (Version None)
Quarter: 2012Q2

REPORT INFORMATION
  Report Type: 
  Country: None (occurrence: None)
  Receive Date: 20120619
  Receipt Date: 20120608
  Transmission Date: 20120825
  Serious: Yes (Hospitalization, Other)
  Sender: FDA-Public Use
  Company Number: 2012032393

PATIENT
  Sex: Male
  Weight: 104.7809 kg

DRUGS (6)
  1. BERINERT [Suspect]
     Indication: HEREDITARY ANGIOEDEMA
     Dosage: INTRAVENOUS (NOT OTHERWISE SPECIFIED)
     Route: 042
     Dates: start: 20120501
  2. CEFAZOLIN [Concomitant]
  3. CINRYZE [Suspect]
     Indication: HEREDITARY ANGIOEDEMA
     Dosage: 1000 IU, QOD
     Dates: start: 20111001
  4. COUMADIN (WARARIN SODIUM) [Concomitant]
  5. INSULIN (INSULIN) [Concomitant]
  6. LOVENOX [Concomitant]

REACTIONS (5)
  - HEREDITARY ANGIOEDEMA [None]
  - VENOUS THROMBOSIS [None]
  - OFF LABEL USE [None]
  - DEVICE RELATED INFECTION [None]
  - STAPHYLOCOCCAL INFECTION [None]
